FAERS Safety Report 7089410-4 (Version None)
Quarter: 2010Q4

REPORT INFORMATION
  Report Type: 
  Country: None (occurrence: None)
  Receive Date: 20101108
  Receipt Date: 20101101
  Transmission Date: 20110411
  Serious: Yes (Hospitalization)
  Sender: FDA-Public Use
  Company Number: US-ELI_LILLY_AND_COMPANY-US201008002269

PATIENT
  Sex: Female
  Weight: 78.458 kg

DRUGS (12)
  1. BYETTA [Suspect]
     Indication: TYPE 2 DIABETES MELLITUS
     Dosage: 5 UG, 2/D
     Route: 058
  2. BYETTA [Suspect]
     Dosage: 10 UG, 2/D
     Route: 058
  3. BYETTA [Suspect]
     Dosage: 10 UG, 2/D
     Route: 058
  4. BYETTA [Suspect]
     Dosage: 10 UG, 2/D
     Route: 058
  5. METFORMIN HCL [Concomitant]
     Indication: TYPE 2 DIABETES MELLITUS
     Dosage: 1000 D/F, 2/D
     Route: 048
  6. XANAX [Concomitant]
     Dosage: UNK, 2/D
     Route: 048
  7. LEVOTHYROXINE [Concomitant]
     Dosage: UNK, DAILY (1/D)
     Route: 048
  8. ACTOS [Concomitant]
     Indication: TYPE 2 DIABETES MELLITUS
     Dosage: 30 MG, DAILY (1/D)
     Route: 048
  9. DIOVAN [Concomitant]
     Dosage: UNK, DAILY (1/D)
     Route: 048
  10. SIMVASTATIN [Concomitant]
     Dosage: UNK, DAILY (1/D)
     Route: 048
  11. LEXAPRO [Concomitant]
     Dosage: UNK, DAILY (1/D)
     Route: 048
  12. GLUCOSAMINE CHONDROITIN [Concomitant]
     Dosage: UNK, DAILY (1/D)
     Route: 048

REACTIONS (7)
  - BACK PAIN [None]
  - BLOOD GLUCOSE ABNORMAL [None]
  - FAECALOMA [None]
  - MOBILITY DECREASED [None]
  - SCOLIOSIS [None]
  - URINARY TRACT INFECTION [None]
  - WEIGHT DECREASED [None]
